FAERS Safety Report 5664118-8 (Version None)
Quarter: 2008Q1

REPORT INFORMATION
  Report Type: 
  Country: None (occurrence: None)
  Receive Date: 20080314
  Receipt Date: 20080304
  Transmission Date: 20080703
  Serious: Yes (Hospitalization)
  Sender: FDA-Public Use
  Company Number: US-ROCHE-550975

PATIENT
  Age: 90 Year
  Sex: Female

DRUGS (3)
  1. BONIVA [Suspect]
     Indication: DRUG USE FOR UNKNOWN INDICATION
     Route: 048
     Dates: start: 20070217, end: 20080217
  2. BONIVA [Concomitant]
     Route: 042
     Dates: start: 20070201
  3. 2 CONCOMITANT DRUGS [Concomitant]
     Dosage: DRUG: HEART MEDICATION AND CHOLESTEROL MEDICATION

REACTIONS (2)
  - ABDOMINAL DISCOMFORT [None]
  - CARDIAC FAILURE CONGESTIVE [None]
